FAERS Safety Report 18100789 (Version 4)
Quarter: 2020Q4

REPORT INFORMATION
  Report Type: Report from Study
  Country: US (occurrence: US)
  Receive Date: 20200731
  Receipt Date: 20201022
  Transmission Date: 20210113
  Serious: No
  Sender: FDA-Public Use
  Company Number: NVSC2020US214502

PATIENT
  Age: 43 Year
  Sex: Female

DRUGS (1)
  1. COSENTYX [Suspect]
     Active Substance: SECUKINUMAB
     Indication: PSORIASIS
     Dosage: 300 MG, Q WEEKLY X 5 WEEKS THEN 300MG Q 4 WEEKS
     Route: 058
     Dates: start: 20200729

REACTIONS (2)
  - Dermatitis allergic [Unknown]
  - Headache [Unknown]

NARRATIVE: CASE EVENT DATE: 20200730
